FAERS Safety Report 7981347-9 (Version None)
Quarter: 2011Q4

REPORT INFORMATION
  Report Type: 
  Country: None (occurrence: None)
  Receive Date: 20111215
  Receipt Date: 20111201
  Transmission Date: 20120403
  Serious: Yes (Disabling)
  Sender: FDA-Public Use
  Company Number: SE-JNJFOC-20111102011

PATIENT
  Age: 45 Year
  Sex: Male

DRUGS (9)
  1. PALEXIA DEPOT [Suspect]
     Indication: BACK PAIN
     Dosage: TWICE DAILY
     Route: 048
  2. ACETAMINOPHEN [Concomitant]
     Indication: PRODUCT USED FOR UNKNOWN INDICATION
     Route: 048
  3. PALEXIA DEPOT [Suspect]
     Dosage: TWICE DAILY
     Route: 048
     Dates: start: 20110926, end: 20111003
  4. TESTOSTERONE [Concomitant]
     Indication: PRODUCT USED FOR UNKNOWN INDICATION
     Dosage: ONCE A DAY
     Route: 065
  5. PALEXIA DEPOT [Suspect]
     Dosage: TWICE DAILY
     Route: 048
     Dates: start: 20110921, end: 20110925
  6. VENLAFAXINE HCL [Concomitant]
     Indication: PRODUCT USED FOR UNKNOWN INDICATION
     Dosage: ONCE A DAY
     Route: 048
  7. OMEPRAZOLE [Concomitant]
     Indication: PRODUCT USED FOR UNKNOWN INDICATION
     Dosage: ONCE A DAY
     Route: 048
  8. PROPIOMAZINE [Concomitant]
     Indication: PRODUCT USED FOR UNKNOWN INDICATION
     Dosage: ONCE A DAY
     Route: 048
  9. PALEXIA DEPOT [Suspect]
     Dosage: TWICE DAILY
     Route: 048
     Dates: start: 20110917, end: 20110920

REACTIONS (1)
  - DIARRHOEA [None]
